FAERS Safety Report 7945556-7 (Version None)
Quarter: 2011Q4

REPORT INFORMATION
  Report Type: 
  Country: None (occurrence: None)
  Receive Date: 20111125
  Receipt Date: 20111116
  Transmission Date: 20120403
  Serious: Yes (Other)
  Sender: FDA-Public Use
  Company Number: 1002816

PATIENT
  Age: 65 Year
  Sex: Female

DRUGS (10)
  1. DOCETAXEL [Suspect]
     Indication: PRODUCT USED FOR UNKNOWN INDICATION
     Dosage: SEE IMAGE
     Route: 042
     Dates: start: 20110609
  2. DOCETAXEL [Suspect]
     Indication: PRODUCT USED FOR UNKNOWN INDICATION
     Dosage: SEE IMAGE
     Route: 042
     Dates: start: 20110519
  3. DOCETAXEL [Suspect]
     Indication: PRODUCT USED FOR UNKNOWN INDICATION
     Dosage: SEE IMAGE
     Route: 042
     Dates: start: 20110428
  4. PRIMPERAN TAB [Concomitant]
  5. CYCLOPHOSPHAMIDE [Suspect]
     Indication: PRODUCT USED FOR UNKNOWN INDICATION
     Dosage: SEE IMAGE
     Route: 042
     Dates: start: 20110428
  6. CYCLOPHOSPHAMIDE [Suspect]
     Indication: PRODUCT USED FOR UNKNOWN INDICATION
     Dosage: SEE IMAGE
     Route: 042
     Dates: start: 20110519
  7. CYCLOPHOSPHAMIDE [Suspect]
     Indication: PRODUCT USED FOR UNKNOWN INDICATION
     Dosage: SEE IMAGE
     Route: 042
     Dates: start: 20110609
  8. EMEND [Suspect]
     Indication: PRODUCT USED FOR UNKNOWN INDICATION
     Dosage: 125 MG MILLIGRAM(S), UNKNOWN, ORAL; 80 MG MILLIGRAM(S) (UNKNOWN) ORAL
     Route: 048
     Dates: start: 20110609, end: 20110609
  9. EMEND [Suspect]
     Indication: PRODUCT USED FOR UNKNOWN INDICATION
     Dosage: 125 MG MILLIGRAM(S), UNKNOWN, ORAL; 80 MG MILLIGRAM(S) (UNKNOWN) ORAL
     Route: 048
     Dates: start: 20110610, end: 20110611
  10. ONDANSETRON [Concomitant]

REACTIONS (20)
  - RASH [None]
  - DECREASED APPETITE [None]
  - INFECTION [None]
  - NAUSEA [None]
  - MUSCULAR WEAKNESS [None]
  - NEUTROPENIA [None]
  - HEPATIC NEOPLASM MALIGNANT [None]
  - PARAESTHESIA [None]
  - ASTHENIA [None]
  - DYSGEUSIA [None]
  - TOXICITY TO VARIOUS AGENTS [None]
  - ACTIVITIES OF DAILY LIVING IMPAIRED [None]
  - MUCOUS MEMBRANE DISORDER [None]
  - DRUG INTERACTION [None]
  - EYE PAIN [None]
  - GAIT DISTURBANCE [None]
  - MUCOSAL INFLAMMATION [None]
  - TEARFULNESS [None]
  - SKIN TOXICITY [None]
  - NEUROPATHY PERIPHERAL [None]
